FAERS Safety Report 23286606 (Version 1)
Quarter: 2023Q4

REPORT INFORMATION
  Report Type: Spontaneous
  Country: IN (occurrence: IN)
  Receive Date: 20231212
  Receipt Date: 20231212
  Transmission Date: 20240109
  Serious: Yes (Other)
  Sender: FDA-Public Use
  Company Number: None

PATIENT
  Age: 54 Year
  Sex: Male

DRUGS (3)
  1. LEVETIRACETAM [Suspect]
     Active Substance: LEVETIRACETAM
     Indication: Frontal lobe epilepsy
     Dosage: 2000 MG, ONCE PER DAY
     Route: 065
  2. CARBAMAZEPINE [Concomitant]
     Active Substance: CARBAMAZEPINE
     Indication: Frontal lobe epilepsy
     Dosage: 800 MG, ONCE PER DAY
     Route: 065
  3. CLOBAZAM [Concomitant]
     Active Substance: CLOBAZAM
     Indication: Frontal lobe epilepsy
     Dosage: 20 MG, ONCE PER DAY
     Route: 065

REACTIONS (3)
  - Paradoxical drug reaction [Recovered/Resolved]
  - Psychogenic seizure [Recovered/Resolved]
  - Seizure [Recovered/Resolved]
